FAERS Safety Report 20216056 (Version 10)
Quarter: 2022Q2

REPORT INFORMATION
  Report Type: Report from Study
  Country: CN (occurrence: None)
  Receive Date: 20211222
  Receipt Date: 20220602
  Transmission Date: 20220721
  Serious: Yes (Hospitalization)
  Sender: FDA-Public Use
  Company Number: CN-ROCHE-2982452

PATIENT
  Age: 64 Year
  Sex: Male
  Weight: 60 kg

DRUGS (29)
  1. ATEZOLIZUMAB [Suspect]
     Active Substance: ATEZOLIZUMAB
     Indication: Small cell lung cancer extensive stage
     Route: 041
     Dates: start: 20210910
  2. BEVACIZUMAB [Suspect]
     Active Substance: BEVACIZUMAB
     Indication: Small cell lung cancer extensive stage
     Dosage: DATE OF MOST RECENT DOSE OF BEVACIZUMAB/PLACEBO PRIOR TO AE ONSET: 21/OCT/2021
     Route: 042
     Dates: start: 20210910
  3. CARBOPLATIN [Suspect]
     Active Substance: CARBOPLATIN
     Indication: Small cell lung cancer extensive stage
     Route: 042
     Dates: start: 20210910
  4. ETOPOSIDE [Suspect]
     Active Substance: ETOPOSIDE
     Indication: Small cell lung cancer extensive stage
     Route: 042
     Dates: start: 20210910
  5. RAMOSETRON HYDROCHLORIDE [Concomitant]
     Active Substance: RAMOSETRON HYDROCHLORIDE
     Dates: start: 20210910, end: 20210912
  6. RAMOSETRON HYDROCHLORIDE [Concomitant]
     Active Substance: RAMOSETRON HYDROCHLORIDE
     Dates: start: 20210928, end: 20211001
  7. VITAMIN B6 [Concomitant]
     Active Substance: PYRIDOXINE HYDROCHLORIDE
     Dates: start: 20210910, end: 20210912
  8. VITAMIN B6 [Concomitant]
     Active Substance: PYRIDOXINE HYDROCHLORIDE
     Dates: start: 20210928, end: 20211001
  9. POTASSIUM CHLORIDE [Concomitant]
     Active Substance: POTASSIUM CHLORIDE
     Dates: start: 20210910, end: 20210912
  10. POTASSIUM CHLORIDE [Concomitant]
     Active Substance: POTASSIUM CHLORIDE
     Dates: start: 20210928, end: 20211001
  11. CIMETIDINE [Concomitant]
     Active Substance: CIMETIDINE
     Dates: start: 20210910, end: 20210912
  12. CIMETIDINE [Concomitant]
     Active Substance: CIMETIDINE
     Dates: start: 20210928, end: 20211001
  13. SODIUM BICARBONATE [Concomitant]
     Active Substance: SODIUM BICARBONATE
     Dates: start: 20210910, end: 20210912
  14. SODIUM BICARBONATE [Concomitant]
     Active Substance: SODIUM BICARBONATE
     Dates: start: 20210928, end: 20211001
  15. MANNITOL [Concomitant]
     Active Substance: MANNITOL
     Dates: start: 20210910, end: 20210912
  16. MANNITOL [Concomitant]
     Active Substance: MANNITOL
     Dates: start: 20210928, end: 20211001
  17. FOSAPREPITANT DIMEGLUMINE [Concomitant]
     Active Substance: FOSAPREPITANT DIMEGLUMINE
     Dates: start: 20210910, end: 20210912
  18. DIPHENHYDRAMINE HYDROCHLORIDE [Concomitant]
     Active Substance: DIPHENHYDRAMINE HYDROCHLORIDE
     Dates: start: 20210928, end: 20210929
  19. DIPHENHYDRAMINE HYDROCHLORIDE [Concomitant]
     Active Substance: DIPHENHYDRAMINE HYDROCHLORIDE
     Dates: start: 20211021, end: 20211021
  20. CODEINE [Concomitant]
     Active Substance: CODEINE
     Dates: start: 20211022, end: 20211024
  21. INSULIN NOS [Concomitant]
     Active Substance: INSULIN NOS
     Dates: start: 20211021, end: 20211021
  22. GLYCERIN [Concomitant]
     Active Substance: GLYCERIN
     Dates: start: 20211023, end: 20211023
  23. ETHAMSYLATE [Concomitant]
     Active Substance: ETHAMSYLATE
     Indication: Pulmonary haemorrhage
     Route: 042
     Dates: start: 20210917, end: 20210920
  24. ETHAMSYLATE [Concomitant]
     Active Substance: ETHAMSYLATE
     Route: 042
     Dates: start: 20211025, end: 20211026
  25. CARBAZOCHROME SODIUM SULFONATE;SODIUM CHLORIDE [Concomitant]
     Indication: Pulmonary haemorrhage
     Route: 042
     Dates: start: 20211017, end: 20211020
  26. CARBAZOCHROME SODIUM SULFONATE;SODIUM CHLORIDE [Concomitant]
     Route: 042
     Dates: start: 20211025, end: 20211026
  27. COMPOUND LIQUORICE [Concomitant]
     Indication: Cough
     Route: 048
     Dates: start: 20211026, end: 20211026
  28. PENICILLIN G SODIUM [Concomitant]
     Active Substance: PENICILLIN G SODIUM
     Indication: Bronchitis
     Route: 058
     Dates: start: 20211214, end: 20211214
  29. SAFFLOWER EXTRACT AND ACEGLUTAMIDE [Concomitant]
     Indication: Prophylaxis
     Route: 042
     Dates: start: 20211214, end: 20211214

REACTIONS (1)
  - Pulmonary embolism [Not Recovered/Not Resolved]

NARRATIVE: CASE EVENT DATE: 20211215
